FAERS Safety Report 21533054 (Version 1)
Quarter: 2022Q4

REPORT INFORMATION
  Report Type: Spontaneous
  Country: IN (occurrence: IN)
  Receive Date: 20221101
  Receipt Date: 20221101
  Transmission Date: 20230112
  Serious: Yes (Death, Life-Threatening, Hospitalization)
  Sender: FDA-Public Use
  Company Number: IN-drreddys-LIT/IND/22/0156081

PATIENT
  Age: 47 Year
  Sex: Male

DRUGS (20)
  1. POSACONAZOLE [Suspect]
     Active Substance: POSACONAZOLE
     Indication: Mucormycosis
  2. POSACONAZOLE [Suspect]
     Active Substance: POSACONAZOLE
     Indication: Sepsis
  3. POSACONAZOLE [Suspect]
     Active Substance: POSACONAZOLE
     Indication: Pseudomonas infection
  4. POSACONAZOLE [Suspect]
     Active Substance: POSACONAZOLE
     Indication: Bacterial infection
  5. AMPHOTERICIN B [Suspect]
     Active Substance: AMPHOTERICIN B
     Indication: Mucormycosis
  6. AMPHOTERICIN B [Suspect]
     Active Substance: AMPHOTERICIN B
     Indication: Sepsis
  7. AMPHOTERICIN B [Suspect]
     Active Substance: AMPHOTERICIN B
     Indication: Pseudomonas infection
  8. AMPHOTERICIN B [Suspect]
     Active Substance: AMPHOTERICIN B
     Indication: Bacterial infection
  9. MEROPENEM [Suspect]
     Active Substance: MEROPENEM
     Indication: Mucormycosis
  10. MEROPENEM [Suspect]
     Active Substance: MEROPENEM
     Indication: Sepsis
  11. MEROPENEM [Suspect]
     Active Substance: MEROPENEM
     Indication: Pseudomonas infection
  12. MEROPENEM [Suspect]
     Active Substance: MEROPENEM
     Indication: Bacterial infection
  13. CLINDAMYCIN [Suspect]
     Active Substance: CLINDAMYCIN
     Indication: Mucormycosis
  14. CLINDAMYCIN [Suspect]
     Active Substance: CLINDAMYCIN
     Indication: Sepsis
  15. CLINDAMYCIN [Suspect]
     Active Substance: CLINDAMYCIN
     Indication: Pseudomonas infection
  16. CLINDAMYCIN [Suspect]
     Active Substance: CLINDAMYCIN
     Indication: Bacterial infection
  17. POLYMYXIN B [Suspect]
     Active Substance: POLYMYXIN B
     Indication: Mucormycosis
  18. POLYMYXIN B [Suspect]
     Active Substance: POLYMYXIN B
     Indication: Sepsis
  19. POLYMYXIN B [Suspect]
     Active Substance: POLYMYXIN B
     Indication: Pseudomonas infection
  20. POLYMYXIN B [Suspect]
     Active Substance: POLYMYXIN B
     Indication: Bacterial infection

REACTIONS (7)
  - Death [Fatal]
  - Condition aggravated [Unknown]
  - Mucormycosis [Unknown]
  - Sepsis [Unknown]
  - Pseudomonas infection [Unknown]
  - Bacterial infection [Unknown]
  - Drug ineffective for unapproved indication [Unknown]
